FAERS Safety Report 8215309-3 (Version None)
Quarter: 2012Q1

REPORT INFORMATION
  Report Type: 
  Country: None (occurrence: None)
  Receive Date: 20120316
  Receipt Date: 20120308
  Transmission Date: 20120608
  Serious: Yes (Life-Threatening, Hospitalization, Other)
  Sender: FDA-Public Use
  Company Number: US-SANOFI-AVENTIS-2012SA016207

PATIENT
  Age: 63 Year
  Sex: Female

DRUGS (4)
  1. ENOXAPARIN SODIUM [Suspect]
     Route: 065
  2. ENOXAPARIN SODIUM [Suspect]
     Indication: DEEP VEIN THROMBOSIS
     Route: 065
     Dates: start: 20100701
  3. ENOXAPARIN SODIUM [Suspect]
     Route: 065
  4. ENOXAPARIN SODIUM [Suspect]
     Indication: PULMONARY EMBOLISM
     Route: 065
     Dates: start: 20100701

REACTIONS (7)
  - HAEMOGLOBIN DECREASED [None]
  - ACTIVATED PARTIAL THROMBOPLASTIN TIME PROLONGED [None]
  - VAGINAL HAEMORRHAGE [None]
  - HAEMATOMA [None]
  - PERONEAL NERVE PALSY [None]
  - PARAESTHESIA [None]
  - ECCHYMOSIS [None]
